FAERS Safety Report 24829808 (Version 1)
Quarter: 2025Q1

REPORT INFORMATION
  Report Type: Spontaneous
  Country: PT (occurrence: PT)
  Receive Date: 20250110
  Receipt Date: 20250110
  Transmission Date: 20250408
  Serious: Yes (Other)
  Sender: VIIV
  Company Number: PT-ViiV Healthcare-PT2025ViiV Healthcare001785

PATIENT

DRUGS (6)
  1. LAMIVUDINE [Suspect]
     Active Substance: LAMIVUDINE
     Indication: HIV infection
  2. ABACAVIR [Suspect]
     Active Substance: ABACAVIR
     Indication: HIV infection
  3. DOLUTEGRAVIR [Suspect]
     Active Substance: DOLUTEGRAVIR
     Indication: HIV infection
  4. TENOFOVIR DISOPROXIL FUMARATE [Suspect]
     Active Substance: TENOFOVIR DISOPROXIL FUMARATE
     Indication: HIV infection
  5. EMTRICITABINE [Suspect]
     Active Substance: EMTRICITABINE
     Indication: HIV infection
  6. ATAZANAVIR [Suspect]
     Active Substance: ATAZANAVIR
     Indication: HIV infection

REACTIONS (5)
  - Eyelid ptosis [Not Recovered/Not Resolved]
  - Steatoblepharon [Not Recovered/Not Resolved]
  - Strabismus [Not Recovered/Not Resolved]
  - IIIrd nerve paresis [Not Recovered/Not Resolved]
  - Diplopia [Not Recovered/Not Resolved]
